FAERS Safety Report 15348959 (Version 3)
Quarter: 2018Q4

REPORT INFORMATION
  Report Type: Report from Study
  Country: JP (occurrence: JP)
  Receive Date: 20180904
  Receipt Date: 20181121
  Transmission Date: 20190204
  Serious: Yes (Hospitalization)
  Sender: FDA-Public Use
  Company Number: JP-EISAI MEDICAL RESEARCH-EC-2018-044678

PATIENT
  Age: 25 Year
  Sex: Female
  Weight: 58 kg

DRUGS (4)
  1. FYCOMPA [Suspect]
     Active Substance: PERAMPANEL
     Indication: PARTIAL SEIZURES
     Route: 048
     Dates: start: 20180214, end: 20180311
  2. E KEPPRA [Concomitant]
     Active Substance: LEVETIRACETAM
  3. ALEVIATIN [Concomitant]
     Active Substance: PHENYTOIN SODIUM
  4. SELENICA-R [Concomitant]
     Active Substance: VALPROATE SODIUM

REACTIONS (1)
  - Dissociative disorder [Recovering/Resolving]

NARRATIVE: CASE EVENT DATE: 20180307
